FAERS Safety Report 5010994-1 (Version None)
Quarter: 2006Q2

REPORT INFORMATION
  Report Type: 
  Country: None (occurrence: None)
  Receive Date: 20060523
  Receipt Date: 20060508
  Transmission Date: 20061013
  Serious: Yes (Other)
  Sender: FDA-Public Use
  Company Number: HQWYE780121JAN05

PATIENT
  Age: 59 Year
  Sex: Female
  Weight: 88.53 kg

DRUGS (3)
  1. PREMPRO [Suspect]
     Indication: MENOPAUSE
     Dosage: 0.625MG/2.5MG
     Dates: start: 19970101, end: 20020101
  2. PREMARIN [Suspect]
     Indication: MENOPAUSE
     Dosage: 0.625 MG
     Dates: start: 19930101, end: 19970101
  3. PROVERA [Suspect]
     Indication: MENOPAUSE
     Dosage: 2.5 MG
     Dates: start: 19930101, end: 19970101

REACTIONS (10)
  - BREAST CANCER FEMALE [None]
  - BREAST CANCER IN SITU [None]
  - BREAST HYPERPLASIA [None]
  - DEPRESSION [None]
  - INSOMNIA [None]
  - METASTASES TO LYMPH NODES [None]
  - NERVOUSNESS [None]
  - OESTROGEN RECEPTOR ASSAY POSITIVE [None]
  - PROGESTERONE RECEPTOR ASSAY POSITIVE [None]
  - SEROMA [None]
